FAERS Safety Report 4675969-0 (Version None)
Quarter: 2005Q2

REPORT INFORMATION
  Report Type: 
  Country: None (occurrence: None)
  Receive Date: 20050527
  Receipt Date: 20050314
  Transmission Date: 20051028
  Serious: No
  Sender: FDA-Public Use
  Company Number: US-GLAXOSMITHKLINE-A0549629A

PATIENT
  Age: 66 Year
  Sex: Male

DRUGS (4)
  1. WELLBUTRIN XL [Suspect]
     Indication: DEPRESSION
     Dosage: 150MG PER DAY
     Route: 048
     Dates: start: 20050101
  2. NAPROXEN [Concomitant]
  3. CARDURA [Concomitant]
  4. PRILOSEC [Concomitant]

REACTIONS (3)
  - ABNORMAL DREAMS [None]
  - DRY MOUTH [None]
  - THINKING ABNORMAL [None]
